FAERS Safety Report 5606560-7 (Version None)
Quarter: 2008Q1

REPORT INFORMATION
  Report Type: 
  Country: None (occurrence: None)
  Receive Date: 20080129
  Receipt Date: 20080123
  Transmission Date: 20080703
  Serious: Yes (Hospitalization)
  Sender: FDA-Public Use
  Company Number: DE-AVENTIS-200712793DE

PATIENT
  Age: 75 Year
  Sex: Female
  Weight: 67 kg

DRUGS (7)
  1. ENOXAPARIN SODIUM [Suspect]
     Indication: ATRIAL FIBRILLATION
     Route: 058
     Dates: start: 20040507, end: 20040525
  2. ASPIRIN [Concomitant]
     Dosage: DOSE: 1-0-0
     Route: 048
  3. CLOPIDOGREL [Concomitant]
     Dosage: DOSE: 1-0-0
     Route: 048
  4. SORTIS                             /01326101/ [Concomitant]
     Dosage: DOSE: 0-0-1
     Route: 048
  5. ISOSORBIDE DINITRATE [Concomitant]
     Dosage: DOSE: 1-0-0
     Route: 048
  6. AMIODARONE [Concomitant]
     Dosage: DOSE: 1-0-0
     Route: 049
  7. BROMAZEPAM [Concomitant]
     Dosage: DOSE: 0-0-0-1

REACTIONS (1)
  - VASCULAR PSEUDOANEURYSM [None]
